FAERS Safety Report 17356872 (Version 2)
Quarter: 2020Q1

REPORT INFORMATION
  Report Type: Spontaneous
  Country: BR (occurrence: BR)
  Receive Date: 20200131
  Receipt Date: 20200221
  Transmission Date: 20200409
  Serious: Yes (Other)
  Sender: FDA-Public Use
  Company Number: BR-KOWA-20JP000241

PATIENT

DRUGS (2)
  1. LEVOTHYROXINE SODIUM. [Concomitant]
     Active Substance: LEVOTHYROXINE SODIUM
     Indication: PRODUCT USED FOR UNKNOWN INDICATION
     Dosage: 25 MG, QD
     Route: 048
  2. LIVALO [Suspect]
     Active Substance: PITAVASTATIN CALCIUM
     Indication: BLOOD CHOLESTEROL INCREASED
     Dosage: 2 MG, QD
     Route: 048
     Dates: start: 20200116

REACTIONS (6)
  - Oesophagitis [Unknown]
  - Visual impairment [Not Recovered/Not Resolved]
  - Gastritis [Unknown]
  - Headache [Recovered/Resolved]
  - Intentional dose omission [Unknown]
  - Gastric polyps [Unknown]

NARRATIVE: CASE EVENT DATE: 20200117
